FAERS Safety Report 5398974-8 (Version None)
Quarter: 2007Q3

REPORT INFORMATION
  Report Type: 
  Country: None (occurrence: None)
  Receive Date: 20070724
  Receipt Date: 20070724
  Transmission Date: 20080115
  Serious: Yes (Hospitalization)
  Sender: FDA-Public Use
  Company Number: None

PATIENT
  Sex: Female
  Weight: 69.2 kg

DRUGS (6)
  1. MYLOTARG [Suspect]
     Dosage: 5 MG
  2. CYTARABINE [Suspect]
     Dosage: 3500 MG
  3. DAUNORUBICIN HCL [Suspect]
     Dosage: 270 MG
  4. ETOPOSIDE [Suspect]
     Dosage: 875 MG
  5. DEXAMETHASONE 0.5MG TAB [Concomitant]
  6. PREDNISONE [Concomitant]

REACTIONS (3)
  - CHOLELITHIASIS [None]
  - DRUG TOXICITY [None]
  - PANCREATITIS [None]
